FAERS Safety Report 9324194 (Version 3)
Quarter: 2014Q1

REPORT INFORMATION
  Report Type: Report from Study
  Country: GB (occurrence: GB)
  Receive Date: 20130603
  Receipt Date: 20140324
  Transmission Date: 20141002
  Serious: Yes (Hospitalization)
  Sender: FDA-Public Use
  Company Number: GB-BAYER-2013-063853

PATIENT
  Age: 74 Year
  Sex: Male

DRUGS (5)
  1. PLACEBO (11712) [Suspect]
     Indication: RENAL CELL CARCINOMA
     Dosage: UNK MG, UNK
     Route: 048
     Dates: start: 20120711
  2. SORAFENIB (RAF KINASE INHIBITOR) [Suspect]
     Indication: RENAL CELL CARCINOMA
     Dosage: 400 MG DAILY
     Route: 048
     Dates: start: 20110720, end: 20120711
  3. ASPIRIN [Concomitant]
     Dosage: 75MG DAILY
     Route: 048
  4. BISOPROLOL [Concomitant]
     Dosage: 5MG DAILY
     Route: 048
  5. OMACOR [Concomitant]
     Dosage: 1G DAILY
     Route: 048

REACTIONS (1)
  - Thrombosis [Not Recovered/Not Resolved]
